FAERS Safety Report 12387380 (Version 1)
Quarter: 2016Q2

REPORT INFORMATION
  Report Type: Spontaneous
  Country: US (occurrence: US)
  Receive Date: 20160519
  Receipt Date: 20160519
  Transmission Date: 20160815
  Serious: Yes (Other)
  Sender: FDA-Public Use
  Company Number: US-UCBSA-2016018207

PATIENT
  Age: 30 Year
  Sex: Female
  Weight: 47 kg

DRUGS (4)
  1. VIMPAT [Suspect]
     Active Substance: LACOSAMIDE
     Dosage: DOSE DECREASED PERIODICALLY
  2. VIMPAT [Suspect]
     Active Substance: LACOSAMIDE
     Dosage: 25 MG, 2X/DAY (BID)
  3. VIMPAT [Suspect]
     Active Substance: LACOSAMIDE
     Indication: SEIZURE
     Dosage: 100 MG, 2X/DAY (BID)
     Dates: start: 201003
  4. PHENOBARBITAL. [Concomitant]
     Active Substance: PHENOBARBITAL
     Indication: PRODUCT USED FOR UNKNOWN INDICATION

REACTIONS (4)
  - Atrioventricular block first degree [Unknown]
  - Hypokalaemia [Unknown]
  - Seizure [Not Recovered/Not Resolved]
  - Atrioventricular block first degree [Unknown]

NARRATIVE: CASE EVENT DATE: 20151026
